FAERS Safety Report 21407890 (Version 1)
Quarter: 2022Q4

REPORT INFORMATION
  Report Type: Spontaneous
  Country: CN (occurrence: CN)
  Receive Date: 20221004
  Receipt Date: 20221004
  Transmission Date: 20230113
  Serious: Yes (Hospitalization, Other)
  Sender: FDA-Public Use
  Company Number: None

PATIENT
  Age: 68 Year
  Sex: Female
  Weight: 64 kg

DRUGS (6)
  1. CYCLOPHOSPHAMIDE [Suspect]
     Active Substance: CYCLOPHOSPHAMIDE
     Indication: Breast cancer female
     Dosage: DOSAGE FORM- POWDER INJECTION, 900 MG, Q14D, ST, D1 (DILUTED WITH 0.9% SODIUM CHLORIDE 100 ML)
     Route: 041
     Dates: start: 20220829, end: 20220829
  2. SODIUM CHLORIDE [Suspect]
     Active Substance: SODIUM CHLORIDE
     Indication: Medication dilution
     Dosage: DOSAGE FORM- INJECTION, 100 ML, Q14D, ST, D1 (DILUTED WITH CYCLOPHOSPHAMIDE 900 MG)
     Route: 041
     Dates: start: 20220829, end: 20220829
  3. DEXTROSE MONOHYDRATE [Suspect]
     Active Substance: DEXTROSE MONOHYDRATE
     Indication: Medication dilution
     Dosage: DOSAGE FORM- INJECTION, 100 ML, Q14D, ST, D1 (DILUTED WITH PIRARUBICIN HYDROCHLORIDE 90 MG)
     Route: 041
     Dates: start: 20220829, end: 20220829
  4. PIRARUBICIN HYDROCHLORIDE [Suspect]
     Active Substance: PIRARUBICIN HYDROCHLORIDE
     Indication: Breast cancer female
     Dosage: 90 MG, Q14D, ST, D1 (DILUTED WITH 5% GLUCOSE 100 ML)
     Route: 041
     Dates: start: 20220829, end: 20220829
  5. SILIBININ [Concomitant]
     Active Substance: SILIBININ
     Indication: Prophylaxis
     Dosage: 100 MG, TID (AT THE END OF CHEMOTHERAPY)
     Route: 048
     Dates: start: 20220829
  6. GLUCUROLACTONE [Concomitant]
     Active Substance: GLUCUROLACTONE
     Indication: Prophylaxis
     Dosage: 100 MG, TID (AT THE END OF CHEMOTHERAPY)
     Route: 048
     Dates: start: 20220829

REACTIONS (3)
  - Condition aggravated [Recovered/Resolved]
  - Hepatic function abnormal [Recovered/Resolved]
  - Liver injury [Unknown]

NARRATIVE: CASE EVENT DATE: 20220918
